FAERS Safety Report 21623758 (Version 3)
Quarter: 2022Q4

REPORT INFORMATION
  Report Type: Spontaneous
  Country: US (occurrence: US)
  Receive Date: 20221121
  Receipt Date: 20221220
  Transmission Date: 20230113
  Serious: No
  Sender: FDA-Public Use
  Company Number: US-PFIZER INC-PV202200095939

PATIENT
  Age: 66 Year
  Sex: Female
  Weight: 29.206 kg

DRUGS (1)
  1. CIBINQO [Suspect]
     Active Substance: ABROCITINIB
     Indication: Neurodermatitis
     Dosage: 100 MG, 1X/DAY (QUANTITY 30 REFILLS 5)
     Route: 048

REACTIONS (1)
  - Neurodermatitis [Unknown]
